FAERS Safety Report 8205924 (Version 4)
Quarter: 2013Q3

REPORT INFORMATION
  Report Type: Spontaneous
  Country: JP (occurrence: JP)
  Receive Date: 20111028
  Receipt Date: 20130805
  Transmission Date: 20140515
  Serious: Yes (Other)
  Sender: FDA-Public Use
  Company Number: JP-PFIZER INC-2011260246

PATIENT
  Age: 25 Year
  Sex: Male

DRUGS (11)
  1. JZOLOFT [Suspect]
     Indication: DEPRESSION
     Dosage: 25 MG, 2X/DAY
     Route: 048
     Dates: start: 2009, end: 20100525
  2. JZOLOFT [Suspect]
     Dosage: 50 MG, 1X/DAY
     Route: 048
     Dates: start: 20100526, end: 20110321
  3. JZOLOFT [Suspect]
     Dosage: 25 MG, 1X/DAY
     Route: 048
     Dates: start: 20110322, end: 20110516
  4. AMOXAN [Suspect]
     Indication: DEPRESSION
     Dosage: 10 MG, 1X/DAY
     Route: 048
     Dates: start: 2009, end: 20100510
  5. AMOXAN [Suspect]
     Dosage: 20 MG, 2X/DAY
     Route: 048
     Dates: start: 20100511, end: 20100526
  6. DIAMOX [Concomitant]
     Route: 048
  7. TIMOPTOL [Concomitant]
     Route: 047
  8. AZOPT [Concomitant]
     Route: 047
  9. PIVALEPHRINE [Concomitant]
     Route: 047
  10. TAPROS [Concomitant]
     Route: 047
  11. RINDERON [Concomitant]
     Dosage: UNK
     Route: 047

REACTIONS (1)
  - Intraocular pressure increased [Recovering/Resolving]
